FAERS Safety Report 7282609-3 (Version None)
Quarter: 2011Q1

REPORT INFORMATION
  Report Type: 
  Country: None (occurrence: None)
  Receive Date: 20110209
  Receipt Date: 20110125
  Transmission Date: 20110831
  Serious: Yes (Disabling)
  Sender: FDA-Public Use
  Company Number: US-BAYER-2010-008251

PATIENT
  Sex: Male

DRUGS (3)
  1. NEXAVAR [Suspect]
     Dosage: 1 DF, UNK
     Dates: start: 20101219, end: 20110101
  2. NEXAVAR [Suspect]
     Dosage: 1 DF, UNK
     Dates: start: 20110121
  3. NEXAVAR [Suspect]
     Indication: HEPATIC NEOPLASM MALIGNANT
     Dosage: 2 DF, BID
     Dates: start: 20101123, end: 20101201

REACTIONS (12)
  - STOMATITIS [None]
  - ANXIETY [None]
  - AGEUSIA [None]
  - WEIGHT DECREASED [None]
  - PAIN IN EXTREMITY [None]
  - FATIGUE [None]
  - GLOSSODYNIA [None]
  - OROPHARYNGEAL PAIN [None]
  - INSOMNIA [None]
  - HYPOAESTHESIA ORAL [None]
  - APHAGIA [None]
  - MYALGIA [None]
